FAERS Safety Report 6639552-X (Version None)
Quarter: 2010Q1

REPORT INFORMATION
  Report Type: 
  Country: None (occurrence: None)
  Receive Date: 20100318
  Receipt Date: 20100312
  Transmission Date: 20100710
  Serious: Yes (Death)
  Sender: FDA-Public Use
  Company Number: CH-JNJFOC-20100303420

PATIENT
  Age: 36 Year
  Sex: Male

DRUGS (12)
  1. RISPERDAL [Suspect]
     Indication: DRUG USE FOR UNKNOWN INDICATION
     Route: 048
  2. RISPERDAL [Suspect]
     Route: 048
  3. RISPERDAL [Suspect]
     Route: 048
  4. RISPERDAL [Suspect]
     Route: 048
  5. METHADONE HCL [Suspect]
     Indication: DRUG USE FOR UNKNOWN INDICATION
     Route: 065
  6. CITALOPRAM HYDROBROMIDE [Concomitant]
     Indication: DEPRESSION
     Route: 065
  7. TEMESTA [Concomitant]
     Indication: ANXIETY
     Route: 065
  8. TEMESTA [Concomitant]
     Route: 065
  9. STILNOX [Concomitant]
     Route: 065
  10. FRAXIFORTE [Concomitant]
     Route: 058
  11. SINTROM [Concomitant]
     Route: 065
  12. IMOVANE [Concomitant]
     Route: 065

REACTIONS (3)
  - DEEP VEIN THROMBOSIS [None]
  - OVERDOSE [None]
  - SUICIDAL IDEATION [None]
